FAERS Safety Report 7947990-8 (Version None)
Quarter: 2011Q4

REPORT INFORMATION
  Report Type: 
  Country: None (occurrence: None)
  Receive Date: 20111130
  Receipt Date: 20111119
  Transmission Date: 20120403
  Serious: Yes (Other)
  Sender: FDA-Public Use
  Company Number: ES-JNJFOC-20111109819

PATIENT
  Age: 16 Year
  Sex: Female

DRUGS (2)
  1. RISPERIDONE [Suspect]
     Indication: BULIMIA NERVOSA
     Route: 048
  2. RISPERDAL CONSTA [Suspect]
     Indication: BULIMIA NERVOSA
     Route: 030

REACTIONS (3)
  - HYPERPROLACTINAEMIA [None]
  - GALACTORRHOEA [None]
  - OFF LABEL USE [None]
